FAERS Safety Report 15053006 (Version 1)
Quarter: 2018Q2

REPORT INFORMATION
  Report Type: Spontaneous
  Country: US (occurrence: US)
  Receive Date: 20180622
  Receipt Date: 20180622
  Transmission Date: 20180711
  Serious: No
  Sender: FDA-Public Use
  Company Number: US-VIFOR (INTERNATIONAL) INC.-VIT-2018-05240

PATIENT
  Age: 38 Year
  Sex: Female
  Weight: 90 kg

DRUGS (20)
  1. VENOFER [Concomitant]
     Active Substance: IRON SUCROSE
     Indication: PRODUCT USED FOR UNKNOWN INDICATION
     Route: 040
     Dates: start: 20180522
  2. LEVEMIR [Concomitant]
     Active Substance: INSULIN DETEMIR
     Dates: start: 20180417
  3. ZEMPLAR [Concomitant]
     Active Substance: PARICALCITOL
     Dosage: 1ST, 2ND AND 3RD SCHEDULED TREATMENT
     Route: 040
     Dates: start: 20180412
  4. RENVELA [Concomitant]
     Active Substance: SEVELAMER CARBONATE
     Dosage: 800 MG/4
     Route: 048
     Dates: start: 20180407
  5. SALINE [Concomitant]
     Active Substance: SODIUM CHLORIDE
     Dosage: 2-4 PUFFS
     Route: 045
     Dates: start: 20180407
  6. MIRCERA [Suspect]
     Active Substance: METHOXY POLYETHYLENE GLYCOL-EPOETIN BETA
     Indication: ANAEMIA
     Route: 040
     Dates: start: 20180109, end: 20180522
  7. ALLEGRA [Concomitant]
     Active Substance: FEXOFENADINE HYDROCHLORIDE
     Route: 048
     Dates: start: 20180504
  8. LIDOCAINE. [Concomitant]
     Active Substance: LIDOCAINE
     Dosage: 2.5%
     Route: 061
     Dates: start: 20171114
  9. CEFALEXIN [Concomitant]
     Active Substance: CEPHALEXIN
     Route: 048
     Dates: start: 20180412
  10. HYDRALAZINE [Concomitant]
     Active Substance: HYDRALAZINE HYDROCHLORIDE
     Route: 048
     Dates: start: 20171228
  11. NOVOLOG [Concomitant]
     Active Substance: INSULIN ASPART
     Dosage: 6 U
     Route: 058
     Dates: start: 20180417
  12. FISH OIL [Concomitant]
     Active Substance: FISH OIL
     Dosage: 100 MG/2
     Route: 048
     Dates: start: 20170509
  13. MORPHINE [Concomitant]
     Active Substance: MORPHINE
     Route: 048
     Dates: start: 20180503
  14. PREDNISONE. [Concomitant]
     Active Substance: PREDNISONE
     Route: 048
     Dates: start: 20180412
  15. ALBUTEROL. [Concomitant]
     Active Substance: ALBUTEROL
     Dosage: IN-INHALER
     Dates: start: 20180407
  16. ERGOCALCIFEROL. [Concomitant]
     Active Substance: ERGOCALCIFEROL
     Route: 048
     Dates: start: 20180407
  17. DIALYVITE [Concomitant]
     Active Substance: ASCORBIC ACID\BIOTIN\CALCIUM PANTOTHENATE\COBALAMIN\FOLIC ACID\NIACINAMIDE\PYRIDOXINE HYDROCHLORIDE\RIBOFLAVIN\THIAMINE MONONITRATE
     Dosage: 800 MG/1
     Route: 048
     Dates: start: 20170509
  18. TUMS [Concomitant]
     Active Substance: CALCIUM CARBONATE
     Route: 048
     Dates: start: 20180508
  19. CODEINE PHOSPHATE~~CAFFEINE~~PARACETAMOL [Concomitant]
     Dosage: 300/30 MILLIGRAM
     Route: 048
     Dates: start: 20180417
  20. IBUPROFEN. [Concomitant]
     Active Substance: IBUPROFEN
     Route: 048
     Dates: start: 20170509

REACTIONS (2)
  - Inappropriate schedule of drug administration [Unknown]
  - No adverse event [Unknown]

NARRATIVE: CASE EVENT DATE: 201805
